FAERS Safety Report 8262929-6 (Version None)
Quarter: 2012Q2

REPORT INFORMATION
  Report Type: 
  Country: None (occurrence: None)
  Receive Date: 20120405
  Receipt Date: 20120402
  Transmission Date: 20120825
  Serious: Yes (Death, Hospitalization)
  Sender: FDA-Public Use
  Company Number: IN-VIIV HEALTHCARE LIMITED-B0793134A

PATIENT
  Sex: Male

DRUGS (25)
  1. PANTOPRAZOLE [Concomitant]
  2. MULTI-VITAMIN [Concomitant]
  3. ADRENALIN IN OIL INJ [Concomitant]
  4. LAMIVUDINE (EPIVIR HBV) [Suspect]
     Indication: HIV INFECTION
     Dosage: 300MG PER DAY
     Route: 048
     Dates: start: 20120228, end: 20120310
  5. NITAZOXANIDE [Concomitant]
  6. ETHAMBUTOL HYDROCHLORIDE [Concomitant]
  7. FILGRASTIM [Concomitant]
  8. EFAVIRENZ [Suspect]
     Indication: HIV INFECTION
     Dosage: 600MG PER DAY
     Route: 048
     Dates: start: 20120228, end: 20120311
  9. NEVIRAPINE [Suspect]
     Indication: HIV INFECTION
     Dosage: 200MG TWICE PER DAY
     Route: 048
     Dates: start: 20120106, end: 20120228
  10. LACTULOSE [Concomitant]
  11. TENOFOVIR DISOPROXIL FUMARATE [Suspect]
     Indication: HIV INFECTION
     Dosage: 300MG PER DAY
     Route: 048
     Dates: start: 20120228, end: 20120310
  12. HYDROCORTISONE [Concomitant]
  13. NORFLOXACIN [Concomitant]
  14. L-GLUTAMINE [Concomitant]
  15. CALCIUM GLUCONATE [Concomitant]
  16. DOMPERIDONE [Concomitant]
  17. SACCHAROMYCES BOULARDII [Concomitant]
  18. ISONIAZID [Concomitant]
  19. ATROPINE [Concomitant]
  20. SODIUM BICARBONATE [Concomitant]
  21. NOREPINEPHRINE BITARTRATE [Concomitant]
  22. LAMIVUDINE + ZIDOVUDINE [Suspect]
     Indication: HIV INFECTION
     Route: 048
     Dates: start: 20120105, end: 20120228
  23. TRIMETHOPRIM + SULPHAMERAZINE [Concomitant]
  24. RIFAMPICIN [Concomitant]
  25. PYRAZINAMIDE [Concomitant]

REACTIONS (14)
  - SEPSIS [None]
  - BRONCHIECTASIS [None]
  - COUGH [None]
  - DIARRHOEA [None]
  - HYPOTENSION [None]
  - PANCYTOPENIA [None]
  - DYSPNOEA [None]
  - BULLOUS LUNG DISEASE [None]
  - PLEURAL EFFUSION [None]
  - PULSE ABSENT [None]
  - MULTI-ORGAN FAILURE [None]
  - KLEBSIELLA INFECTION [None]
  - PSEUDOMONAS INFECTION [None]
  - BRADYCARDIA [None]
